FAERS Safety Report 17297234 (Version 1)
Quarter: 2020Q1

REPORT INFORMATION
  Report Type: Spontaneous
  Country: US (occurrence: US)
  Receive Date: 20200122
  Receipt Date: 20200122
  Transmission Date: 20200409
  Serious: Yes (Hospitalization, Other)
  Sender: FDA-Public Use
  Company Number: US-CIPLA LTD.-2020US00242

PATIENT

DRUGS (1)
  1. HYDRALAZINE [Suspect]
     Active Substance: HYDRALAZINE HYDROCHLORIDE
     Indication: PRODUCT USED FOR UNKNOWN INDICATION
     Dosage: UNK
     Route: 065

REACTIONS (8)
  - Anti-neutrophil cytoplasmic antibody positive vasculitis [Recovered/Resolved]
  - Pulmonary oedema [Recovered/Resolved]
  - Anaemia [Unknown]
  - Lupus nephritis [Unknown]
  - Respiratory distress [Recovered/Resolved]
  - Leukocytosis [Unknown]
  - Pulmonary alveolar haemorrhage [Recovered/Resolved]
  - End stage renal disease [Unknown]
